FAERS Safety Report 22190137 (Version 8)
Quarter: 2023Q2

REPORT INFORMATION
  Report Type: Spontaneous
  Country: CA (occurrence: CA)
  Receive Date: 20230410
  Receipt Date: 20230630
  Transmission Date: 20230722
  Serious: Yes (Hospitalization, Other)
  Sender: FDA-Public Use
  Company Number: CA-CELLTRION INC.-2022CA018130

PATIENT

DRUGS (22)
  1. INFLECTRA [Suspect]
     Active Substance: INFLIXIMAB-DYYB
     Indication: Colitis ulcerative
     Dosage: 5 MG/KG (CAN ROUND UP TO NEAREST 100 MG INCREMENT EVERY Q0,2,6 WKS, THEN EVERY 8 WKS)
     Route: 042
     Dates: start: 20221103
  2. INFLECTRA [Suspect]
     Active Substance: INFLIXIMAB-DYYB
     Dosage: 5 MG/KG (CAN ROUND UP TO NEAREST 100 INCREMENT EVERY 0,2,6 WKS, THEN EVERY 8 WKS)
     Route: 042
     Dates: start: 20221103
  3. INFLECTRA [Suspect]
     Active Substance: INFLIXIMAB-DYYB
     Dosage: 5 MG/KG (CAN ROUND UP TO NEAREST 100 INCREMENT EVERY 0,2,6 WKS, THEN EVERY 8 WKS)
     Route: 042
     Dates: start: 20230209
  4. INFLECTRA [Suspect]
     Active Substance: INFLIXIMAB-DYYB
     Dosage: 400 MG AFTER 7 WEEKS (RX=4 WEEKS)
     Route: 042
     Dates: start: 20230330, end: 20230330
  5. INFLECTRA [Suspect]
     Active Substance: INFLIXIMAB-DYYB
     Dosage: 800 MG, EVERY 4 WEEKS
     Route: 042
     Dates: start: 20230427
  6. INFLECTRA [Suspect]
     Active Substance: INFLIXIMAB-DYYB
     Dosage: 800 MG, EVERY 4 WEEKS
     Route: 042
     Dates: start: 20230525
  7. INFLECTRA [Suspect]
     Active Substance: INFLIXIMAB-DYYB
     Dosage: 800 MG, EVERY 4 WEEKS
     Route: 042
     Dates: start: 20230622
  8. ATIVAN [Concomitant]
     Active Substance: LORAZEPAM
     Dosage: 1 MG, AS NEEDED, PRN
     Route: 065
  9. CLOPIDOGREL [Concomitant]
     Active Substance: CLOPIDOGREL BISULFATE
     Dosage: 75 MG, 1X/DAY
     Route: 065
  10. FLUOXETINE [Concomitant]
     Active Substance: FLUOXETINE HYDROCHLORIDE
     Dosage: 20 MG, 1X/DAY
     Route: 065
  11. ISOSORBIDE DINITRATE [Concomitant]
     Active Substance: ISOSORBIDE DINITRATE
     Dosage: UNK, AS NEEDED, PRN
  12. ONDANSETRON [Concomitant]
     Active Substance: ONDANSETRON
     Dosage: 4 MG, AS NEEDED (EVERY 8 PM), 4MG Q 8 PRN
     Route: 065
  13. PREDNISONE [Concomitant]
     Active Substance: PREDNISONE
     Dosage: 10 MG, 1X/DAY
     Route: 065
     Dates: start: 2022
  14. PREDNISONE [Concomitant]
     Active Substance: PREDNISONE
     Dosage: 60 MG, DAILY (WILL BE ON A TAPERING DOSE OF 5 MG WEEKLY)
  15. PREDNISONE [Concomitant]
     Active Substance: PREDNISONE
     Dosage: 45 MG, 1X/DAY (5MG X 9 PILLS)
  16. PERINDOPRIL [Concomitant]
     Active Substance: PERINDOPRIL
     Dosage: 2 MG, 1X/DAY
     Route: 065
  17. ROSUVASTATIN [Concomitant]
     Active Substance: ROSUVASTATIN
     Dosage: 20 MG, 1X/DAY
     Route: 065
  18. RISEDRONATE SODIUM [Concomitant]
     Active Substance: RISEDRONATE SODIUM
     Dosage: 35 MG, 1X/DAY
     Route: 065
  19. RISEDRONATE SODIUM [Concomitant]
     Active Substance: RISEDRONATE SODIUM
     Dosage: 35 MG, WEEKLY
     Route: 065
  20. SULFASALAZINE [Concomitant]
     Active Substance: SULFASALAZINE
     Dosage: 500 MG, 2X/DAY (2 TABLETS)
     Route: 065
     Dates: start: 20220817
  21. MESALAMINE [Concomitant]
     Active Substance: MESALAMINE
     Dosage: 1 DF BEDTIME (HS), SUPPOSITORY
     Route: 065
  22. TRAZODONE [Concomitant]
     Active Substance: TRAZODONE HYDROCHLORIDE
     Dosage: 50 MG BEDTIME (1-2 TABLETS) HS
     Route: 065

REACTIONS (14)
  - Condition aggravated [Recovering/Resolving]
  - Off label use [Unknown]
  - Off label use [Unknown]
  - Drug ineffective [Unknown]
  - Arthralgia [Unknown]
  - Abdominal distension [Unknown]
  - Anal incontinence [Not Recovered/Not Resolved]
  - Abdominal tenderness [Not Recovered/Not Resolved]
  - Back injury [Unknown]
  - Defaecation urgency [Not Recovered/Not Resolved]
  - Flatulence [Unknown]
  - Insomnia [Not Recovered/Not Resolved]
  - Mucous stools [Not Recovered/Not Resolved]
  - Muscle spasms [Not Recovered/Not Resolved]

NARRATIVE: CASE EVENT DATE: 20220101
